FAERS Safety Report 21578564 (Version 1)
Quarter: 2022Q4

REPORT INFORMATION
  Report Type: Spontaneous
  Country: CN (occurrence: CN)
  Receive Date: 20221110
  Receipt Date: 20221110
  Transmission Date: 20230113
  Serious: Yes (Hospitalization, Other)
  Sender: FDA-Public Use
  Company Number: CN-GLAXOSMITHKLINE-CNCH2022APC042884

PATIENT

DRUGS (1)
  1. DICLOFENAC SODIUM [Suspect]
     Active Substance: DICLOFENAC SODIUM
     Indication: Toothache
     Dosage: 25 MG, QID
     Route: 048
     Dates: start: 20221012, end: 20221012

REACTIONS (14)
  - Erythema multiforme [Recovering/Resolving]
  - Drug eruption [Recovering/Resolving]
  - Tongue erythema [Recovering/Resolving]
  - Oral mucosa erosion [Recovering/Resolving]
  - Oral mucosal erythema [Recovering/Resolving]
  - Lip erythema [Recovering/Resolving]
  - Lip erosion [Recovering/Resolving]
  - Pain [Recovering/Resolving]
  - Erythema of eyelid [Recovering/Resolving]
  - Swelling of eyelid [Recovering/Resolving]
  - Eyelid erosion [Recovering/Resolving]
  - Eyelid margin crusting [Recovering/Resolving]
  - Erythema [Recovering/Resolving]
  - Contusion [Recovering/Resolving]

NARRATIVE: CASE EVENT DATE: 20221019
